FAERS Safety Report 16392716 (Version 2)
Quarter: 2021Q2

REPORT INFORMATION
  Report Type: Spontaneous
  Country: AU (occurrence: AU)
  Receive Date: 20190605
  Receipt Date: 20210629
  Transmission Date: 20210716
  Serious: No
  Sender: FDA-Public Use
  Company Number: AU-GLAXOSMITHKLINE-AU2019GSK098022

PATIENT
  Age: 59 Year
  Sex: Female

DRUGS (2)
  1. NICABATE [Suspect]
     Active Substance: NICOTINE
     Indication: EX-TOBACCO USER
     Dosage: UNK
  2. NICORETTE [Suspect]
     Active Substance: NICOTINE
     Indication: EX-TOBACCO USER
     Dosage: UNK

REACTIONS (4)
  - Nicotine dependence [Unknown]
  - Product use issue [Unknown]
  - Product storage error [Unknown]
  - Intentional product misuse [Unknown]
